FAERS Safety Report 4469482-3 (Version None)
Quarter: 2004Q4

REPORT INFORMATION
  Report Type: 
  Country: None (occurrence: None)
  Receive Date: 20041005
  Receipt Date: 20041005
  Transmission Date: 20050328
  Serious: Yes (Hospitalization, Other)
  Sender: FDA-Public Use
  Company Number: None

PATIENT
  Age: 47 Year
  Sex: Male
  Weight: 81.6475 kg

DRUGS (2)
  1. VIAGRA [Suspect]
     Indication: ERECTILE DYSFUNCTION
     Dosage: 50 MG QD PRN ORAL
     Route: 048
     Dates: start: 20040919, end: 20041002
  2. LISINOPRIL [Concomitant]

REACTIONS (6)
  - FAECAL INCONTINENCE [None]
  - FALL [None]
  - HEAD INJURY [None]
  - HYPERHIDROSIS [None]
  - SKIN LACERATION [None]
  - SYNCOPE VASOVAGAL [None]
